FAERS Safety Report 7983673-6 (Version None)
Quarter: 2011Q4

REPORT INFORMATION
  Report Type: 
  Country: None (occurrence: None)
  Receive Date: 20111215
  Receipt Date: 20111207
  Transmission Date: 20120403
  Serious: Yes (Other)
  Sender: FDA-Public Use
  Company Number: KR-B.I. PHARMACEUTICALS,INC./RIDGEFIELD-2011-BP-28091YA

PATIENT
  Age: 57 Year
  Sex: Male
  Weight: 75 kg

DRUGS (5)
  1. LEVOSULPIRIDE (LEVOSULPIRIDE) [Concomitant]
     Dates: start: 20110822
  2. TAMSULOSIN HCL [Suspect]
     Indication: NEUROGENIC BLADDER
     Dosage: 0.2 MG
     Route: 048
     Dates: start: 20110728
  3. MOSAPRIDE (MOSAPRIDE) [Concomitant]
     Dates: start: 20110822
  4. BETHANECHOL (BETHANECHOL) [Concomitant]
     Dates: start: 20110728
  5. LACTIC ACID (LACTIC ACID) [Concomitant]
     Dates: start: 20110822

REACTIONS (3)
  - RECTAL CANCER [None]
  - ABDOMINAL PAIN [None]
  - METASTASES TO LIVER [None]
